FAERS Safety Report 14350907 (Version 1)
Quarter: 2018Q1

REPORT INFORMATION
  Report Type: Spontaneous
  Country: US (occurrence: US)
  Receive Date: 20180104
  Receipt Date: 20180104
  Transmission Date: 20180509
  Serious: Yes (Hospitalization, Other)
  Sender: FDA-Public Use
  Company Number: US-GLAXOSMITHKLINE-US2018000297

PATIENT
  Sex: Female

DRUGS (1)
  1. ADVAIR DISKUS [Suspect]
     Active Substance: FLUTICASONE PROPIONATE\SALMETEROL XINAFOATE
     Indication: PRODUCT USED FOR UNKNOWN INDICATION
     Route: 055

REACTIONS (5)
  - Dehydration [Unknown]
  - Gastrointestinal surgery [Unknown]
  - Vein disorder [Unknown]
  - Gastrointestinal disorder [Unknown]
  - Pneumonia [Unknown]

NARRATIVE: CASE EVENT DATE: 201712
